FAERS Safety Report 5136897-X (Version None)
Quarter: 2006Q4

REPORT INFORMATION
  Report Type: 
  Country: None (occurrence: None)
  Receive Date: 20061023
  Receipt Date: 20061012
  Transmission Date: 20070319
  Serious: Yes (Hospitalization, Other)
  Sender: FDA-Public Use
  Company Number: 2006125721

PATIENT

DRUGS (1)
  1. LYRICA [Suspect]
     Dosage: 75 MG, ORAL
     Route: 048

REACTIONS (1)
  - DRUG TOXICITY [None]
